FAERS Safety Report 5861104-X (Version None)
Quarter: 2008Q3

REPORT INFORMATION
  Report Type: 
  Country: None (occurrence: None)
  Receive Date: 20080827
  Receipt Date: 20080217
  Transmission Date: 20090109
  Serious: No
  Sender: FDA-Public Use
  Company Number: US-ABBOTT-08P-163-0438705-00

PATIENT
  Sex: Male
  Weight: 87.168 kg

DRUGS (5)
  1. NIASPAN [Suspect]
     Indication: HIGH DENSITY LIPOPROTEIN DECREASED
     Route: 048
     Dates: start: 20080101
  2. NIASPAN [Suspect]
     Route: 048
     Dates: start: 20071216, end: 20080101
  3. DOZOL [Concomitant]
     Indication: PREMEDICATION
     Route: 048
  4. IBUPROFEN [Concomitant]
     Indication: PREMEDICATION
     Route: 048
     Dates: start: 20080218
  5. DIPHENHYDRAMINE HYDROCHLORIDE [Concomitant]
     Indication: PREMEDICATION
     Route: 048
     Dates: start: 20080218

REACTIONS (1)
  - FLUSHING [None]
